FAERS Safety Report 15550438 (Version 1)
Quarter: 2018Q4

REPORT INFORMATION
  Report Type: Spontaneous
  Country: US (occurrence: US)
  Receive Date: 20181019
  Receipt Date: 20181019
  Transmission Date: 20190205
  Serious: Yes (Other)
  Sender: FDA-Public Use
  Company Number: None

PATIENT
  Age: 45 Year
  Sex: Female

DRUGS (20)
  1. HYZAAR [Concomitant]
     Active Substance: HYDROCHLOROTHIAZIDE\LOSARTAN POTASSIUM
  2. HUMALOG [Concomitant]
     Active Substance: INSULIN LISPRO
  3. IMURAN [Concomitant]
     Active Substance: AZATHIOPRINE
  4. LOVASTATIN. [Concomitant]
     Active Substance: LOVASTATIN
  5. LASIX [Concomitant]
     Active Substance: FUROSEMIDE
  6. AMLODIPINE [Concomitant]
     Active Substance: AMLODIPINE BESYLATE
  7. VITAMIN D2 [Concomitant]
     Active Substance: ERGOCALCIFEROL
  8. CLONAZEPAM. [Concomitant]
     Active Substance: CLONAZEPAM
  9. METFORMIN [Concomitant]
     Active Substance: METFORMIN HYDROCHLORIDE
  10. MOBIC [Concomitant]
     Active Substance: MELOXICAM
  11. VENTOLIN HFA [Concomitant]
     Active Substance: ALBUTEROL SULFATE
  12. ATENOLOL. [Concomitant]
     Active Substance: ATENOLOL
  13. PREDNISONE. [Concomitant]
     Active Substance: PREDNISONE
  14. GLIPIZIDE. [Concomitant]
     Active Substance: GLIPIZIDE
  15. TRACLEER [Suspect]
     Active Substance: BOSENTAN
     Indication: SCLERODERMA
     Route: 048
     Dates: start: 201808, end: 201809
  16. NORTRIPTYLINE [Concomitant]
     Active Substance: NORTRIPTYLINE
  17. HUMULAN N [Concomitant]
  18. VIT B-12 [Concomitant]
  19. FOSAMAX [Concomitant]
     Active Substance: ALENDRONATE SODIUM
  20. ZANTAC [Concomitant]
     Active Substance: RANITIDINE HYDROCHLORIDE

REACTIONS (1)
  - Drug intolerance [None]

NARRATIVE: CASE EVENT DATE: 20181012
